FAERS Safety Report 21157827 (Version 3)
Quarter: 2022Q3

REPORT INFORMATION
  Report Type: Spontaneous
  Country: JP (occurrence: None)
  Receive Date: 20220801
  Receipt Date: 20220905
  Transmission Date: 20221026
  Serious: Yes (Death, Other)
  Sender: FDA-Public Use
  Company Number: 2022A270758

PATIENT
  Age: 71 Year
  Sex: Male

DRUGS (5)
  1. IMFINZI [Suspect]
     Active Substance: DURVALUMAB
     Indication: Small cell lung cancer
     Route: 041
     Dates: start: 20210406
  2. ETOPOSIDE [Concomitant]
     Active Substance: ETOPOSIDE
     Indication: Small cell lung cancer
     Dosage: DAY 1, 2 AND 3 OF EACH CYCLE80.0MG/M2 UNKNOWN
     Route: 065
     Dates: start: 20210406
  3. CARBOPLATIN [Concomitant]
     Active Substance: CARBOPLATIN
     Indication: Small cell lung cancer
     Dosage: 5 AUC
     Route: 065
     Dates: start: 20210406
  4. FILGRASTIM [Concomitant]
     Active Substance: FILGRASTIM
     Route: 065
  5. PEGFILGRASTIM [Concomitant]
     Active Substance: PEGFILGRASTIM
     Route: 065

REACTIONS (6)
  - Malignant neoplasm progression [Fatal]
  - Thrombocytopenia [Unknown]
  - Neutropenia [Recovering/Resolving]
  - Diarrhoea [Recovering/Resolving]
  - Leukopenia [Unknown]
  - Anaemia [Unknown]

NARRATIVE: CASE EVENT DATE: 20210408
